FAERS Safety Report 6232956-9 (Version None)
Quarter: 2009Q2

REPORT INFORMATION
  Report Type: 
  Country: None (occurrence: None)
  Receive Date: 20090615
  Receipt Date: 20090615
  Transmission Date: 20091009
  Serious: Yes (Other)
  Sender: FDA-Public Use
  Company Number: None

PATIENT
  Sex: Male
  Weight: 68.0396 kg

DRUGS (1)
  1. THIORIDAZINE HCL [Suspect]
     Indication: INSOMNIA
     Dosage: 100 MG NIGHTLY
     Dates: start: 20090524, end: 20090526

REACTIONS (6)
  - AGITATION [None]
  - FEELING ABNORMAL [None]
  - MUSCULAR WEAKNESS [None]
  - SLEEP DISORDER [None]
  - TREMOR [None]
  - UNEVALUABLE EVENT [None]
